FAERS Safety Report 17732644 (Version 2)
Quarter: 2020Q3

REPORT INFORMATION
  Report Type: Report from Study
  Country: US (occurrence: US)
  Receive Date: 20200501
  Receipt Date: 20200707
  Transmission Date: 20201102
  Serious: Yes (Hospitalization, Other)
  Sender: FDA-Public Use
  Company Number: US-ACTELION-A-US2020-204751

PATIENT
  Sex: Female
  Weight: 78.01 kg

DRUGS (3)
  1. OPSUMIT [Suspect]
     Active Substance: MACITENTAN
     Indication: PULMONARY ARTERIAL HYPERTENSION
     Dosage: 10 MG, QD
     Route: 048
  2. ADEMPAS [Concomitant]
     Active Substance: RIOCIGUAT
  3. ELIQUIS [Concomitant]
     Active Substance: APIXABAN

REACTIONS (7)
  - Pneumonia [Unknown]
  - Haemoglobin decreased [Unknown]
  - Extremity necrosis [Unknown]
  - Hemiparesis [Unknown]
  - Pleural effusion [Unknown]
  - Oxygen saturation decreased [Unknown]
  - Transfusion [Unknown]
